FAERS Safety Report 9093099 (Version 1)
Quarter: 2013Q1

REPORT INFORMATION
  Report Type: Spontaneous
  Country: US (occurrence: US)
  Receive Date: 20130131
  Receipt Date: 20130131
  Transmission Date: 20140127
  Serious: Yes (Other)
  Sender: FDA-Public Use
  Company Number: US-PFIZER INC-2013037172

PATIENT
  Sex: Male

DRUGS (2)
  1. LYRICA [Suspect]
     Dosage: 75 MG, 2X/DAY
  2. AMBIEN [Suspect]
     Dosage: 10 MG, UNK

REACTIONS (3)
  - Diplopia [Unknown]
  - Abdominal pain upper [Unknown]
  - Diarrhoea [Unknown]
